FAERS Safety Report 4590426-8 (Version None)
Quarter: 2005Q1

REPORT INFORMATION
  Report Type: 
  Country: None (occurrence: None)
  Receive Date: 20050224
  Receipt Date: 20050216
  Transmission Date: 20050727
  Serious: Yes (Other)
  Sender: FDA-Public Use
  Company Number: PHFR2005GB00921

PATIENT
  Sex: Male

DRUGS (1)
  1. TEGRETOL [Suspect]

REACTIONS (2)
  - BODY HEIGHT DECREASED [None]
  - MULTIPLE FRACTURES [None]
